FAERS Safety Report 16679285 (Version 5)
Quarter: 2023Q4

REPORT INFORMATION
  Report Type: Spontaneous
  Country: DE (occurrence: None)
  Receive Date: 20190807
  Receipt Date: 20231227
  Transmission Date: 20240110
  Serious: Yes (Other)
  Sender: FDA-Public Use
  Company Number: DE-ROCHE-2369349

PATIENT
  Age: 73 Year
  Sex: Female

DRUGS (4)
  1. TOCILIZUMAB [Suspect]
     Active Substance: TOCILIZUMAB
     Indication: Rheumatoid arthritis
     Route: 042
     Dates: start: 20170801
  2. TOCILIZUMAB [Suspect]
     Active Substance: TOCILIZUMAB
     Indication: Rheumatoid arthritis
     Route: 058
  3. RINVOQ [Concomitant]
     Active Substance: UPADACITINIB
  4. PREDNISOLONE [Concomitant]
     Active Substance: PREDNISOLONE

REACTIONS (13)
  - Pharyngeal swelling [Recovered/Resolved]
  - Dyspnoea [Unknown]
  - Coagulopathy [Unknown]
  - Skin discolouration [Unknown]
  - Swelling face [Unknown]
  - Weight decreased [Unknown]
  - Alopecia [Unknown]
  - Eye disorder [Unknown]
  - Tooth disorder [Unknown]
  - Thrombosis [Unknown]
  - Blood fibrinogen [Unknown]
  - Product storage error [Unknown]
  - Product administration error [Unknown]

NARRATIVE: CASE EVENT DATE: 20181001
